FAERS Safety Report 4392524-0 (Version None)
Quarter: 2004Q3

REPORT INFORMATION
  Report Type: 
  Country: None (occurrence: None)
  Receive Date: 20040702
  Receipt Date: 20040614
  Transmission Date: 20050211
  Serious: Yes (Death, Hospitalization)
  Sender: FDA-Public Use
  Company Number: 6009148

PATIENT
  Age: 79 Year
  Sex: Male

DRUGS (4)
  1. CARDENSIEL 2.5 MG (TABLETS) (BISOPROLOL) [Suspect]
     Dosage: 1,5 DOSAGE FORMS
     Route: 048
     Dates: start: 20040420, end: 20040516
  2. ZOCOR [Suspect]
     Indication: HYPERCHOLESTEROLAEMIA
     Dosage: 40,000 MG (40MG, 1 IN 1D)
     Route: 048
     Dates: start: 20040417, end: 20040505
  3. PLAVIX [Suspect]
     Dosage: 75,000 (75 MG, 1 IN 1 D)
     Route: 048
     Dates: start: 20040417, end: 20040515
  4. ASPEGIC 1000 [Suspect]
     Dosage: 1 DOSAGE FORMS
     Route: 048
     Dates: start: 20040420, end: 20040515

REACTIONS (5)
  - CONFUSIONAL STATE [None]
  - DYSPHAGIA [None]
  - HEPATIC FAILURE [None]
  - HEPATITIS FULMINANT [None]
  - THROMBOCYTOPENIA [None]
